FAERS Safety Report 7164315-9 (Version None)
Quarter: 2010Q4

REPORT INFORMATION
  Report Type: 
  Country: None (occurrence: None)
  Receive Date: 20101215
  Receipt Date: 20101207
  Transmission Date: 20110411
  Serious: Yes (Hospitalization)
  Sender: FDA-Public Use
  Company Number: US-TEVA-259189USA

PATIENT
  Sex: Female

DRUGS (1)
  1. FENTANYL CITRATE [Suspect]
     Indication: GALLBLADDER OPERATION
     Route: 048
     Dates: start: 20101128

REACTIONS (4)
  - BILIARY TRACT DISORDER [None]
  - DIARRHOEA [None]
  - NAUSEA [None]
  - VOMITING [None]
